FAERS Safety Report 8461514-0 (Version None)
Quarter: 2012Q2

REPORT INFORMATION
  Report Type: 
  Country: None (occurrence: None)
  Receive Date: 20120625
  Receipt Date: 20120613
  Transmission Date: 20120825
  Serious: Yes (Other)
  Sender: FDA-Public Use
  Company Number: SE-MPIJNJ-2012-04228

PATIENT

DRUGS (15)
  1. OXAZEPAM [Concomitant]
  2. OXYCONTIN [Concomitant]
  3. ATARAX [Concomitant]
  4. DOXORUBICIN HCL [Concomitant]
     Indication: MULTIPLE MYELOMA
     Dosage: UNK
     Dates: start: 20110501
  5. SIMVASTATIN ARROW [Concomitant]
  6. OMEPRAZOL ACTAVIS [Concomitant]
  7. PROMETHAZINE HYDROCHLORIDE [Concomitant]
  8. DEXAMETHASONE [Concomitant]
     Indication: MULTIPLE MYELOMA
     Dosage: UNK
     Dates: start: 20110501
  9. VELCADE [Suspect]
     Indication: MULTIPLE MYELOMA
     Dosage: UNK
     Route: 065
     Dates: start: 20110207, end: 20110901
  10. OXYCODONE HCL [Concomitant]
  11. POLYETHYLENE GLYCOL [Concomitant]
  12. CYCLOPHOSPHAMIDE [Concomitant]
     Indication: MULTIPLE MYELOMA
     Dosage: UNK
     Dates: start: 20110207, end: 20110901
  13. VINCRISTINE [Concomitant]
     Indication: MULTIPLE MYELOMA
     Dosage: UNK
     Dates: start: 20110501
  14. GABAPENTIN ACTAVIS [Concomitant]
  15. PREDNISONE [Concomitant]
     Dosage: UNK
     Dates: start: 20110207

REACTIONS (1)
  - PAPILLOEDEMA [None]
